FAERS Safety Report 5366602-3 (Version None)
Quarter: 2007Q2

REPORT INFORMATION
  Report Type: 
  Country: None (occurrence: None)
  Receive Date: 20070622
  Receipt Date: 20070611
  Transmission Date: 20071010
  Serious: Yes (Hospitalization)
  Sender: FDA-Public Use
  Company Number: GB-PFIZER INC-2007047995

PATIENT
  Age: 82 Year
  Sex: Female

DRUGS (6)
  1. DOXAZOSIN MESYLATE [Suspect]
     Indication: HYPERTENSION
     Route: 048
  2. ACETYLSALICYLIC ACID SRT [Concomitant]
     Indication: ANTIPLATELET THERAPY
     Dosage: DAILY DOSE:75MG
     Route: 048
  3. DIGOXIN [Concomitant]
     Indication: ATRIAL FIBRILLATION
     Dosage: DAILY DOSE:125MCG
     Route: 048
  4. FUROSEMIDE [Concomitant]
     Indication: LEFT VENTRICULAR FAILURE
     Dosage: DAILY DOSE:40MG
     Route: 048
  5. QUININE SULFATE [Concomitant]
     Indication: MUSCLE SPASMS
     Dosage: DAILY DOSE:300MG
     Route: 048
  6. SPIRONOLACTONE [Concomitant]
     Indication: LEFT VENTRICULAR FAILURE
     Dosage: DAILY DOSE:50MG
     Route: 048

REACTIONS (1)
  - CARDIAC FAILURE CONGESTIVE [None]
